FAERS Safety Report 8502070-8 (Version None)
Quarter: 2012Q2

REPORT INFORMATION
  Report Type: 
  Country: None (occurrence: None)
  Receive Date: 20120405
  Receipt Date: 20100706
  Transmission Date: 20120825
  Serious: Yes (Other)
  Sender: FDA-Public Use
  Company Number: PHHY2010US45084

PATIENT
  Age: 70 Year
  Sex: Female

DRUGS (9)
  1. BENADRYL [Concomitant]
  2. LISINOPRIL [Concomitant]
  3. ASCORBIC ACID [Concomitant]
  4. ACTIFED [Concomitant]
  5. CLARITIN [Concomitant]
  6. CYMBALTA [Concomitant]
  7. MULTIVITAMINS (VITAMINS NOS) [Concomitant]
  8. OMEPRAZOLE [Concomitant]
  9. RECLAST [Suspect]
     Indication: OSTEOPOROSIS
     Dosage: INTRAVENOUS
     Route: 042
     Dates: start: 20100608

REACTIONS (4)
  - URTICARIA [None]
  - NAUSEA [None]
  - MALAISE [None]
  - PRURITUS GENERALISED [None]
